FAERS Safety Report 8473800-9 (Version None)
Quarter: 2012Q2

REPORT INFORMATION
  Report Type: 
  Country: None (occurrence: None)
  Receive Date: 20120628
  Receipt Date: 20111222
  Transmission Date: 20120825
  Serious: Yes (Death)
  Sender: FDA-Public Use
  Company Number: US-MYLANLABS-2011S1023798

PATIENT
  Age: 73 Year
  Sex: Male

DRUGS (6)
  1. ISOSORBIDE MONONITRATE [Concomitant]
  2. TOPROL-XL [Concomitant]
     Dosage: TOPROL XL
  3. CLOZAPINE [Suspect]
     Route: 048
  4. TRIHEXYPHENIDYL HCL [Concomitant]
  5. SERTRALINE HYDROCHLORIDE [Concomitant]
     Dosage: (2) 50MG TABLETS QD
  6. COZAAR [Concomitant]

REACTIONS (1)
  - DEATH [None]
